FAERS Safety Report 6299583-9 (Version None)
Quarter: 2009Q3

REPORT INFORMATION
  Report Type: 
  Country: None (occurrence: None)
  Receive Date: 20090806
  Receipt Date: 20090729
  Transmission Date: 20100115
  Serious: Yes (Hospitalization)
  Sender: FDA-Public Use
  Company Number: US-GILEAD-2009-0022824

PATIENT
  Sex: Male
  Weight: 106.69 kg

DRUGS (18)
  1. LETAIRIS [Suspect]
     Indication: PULMONARY ARTERIAL HYPERTENSION
     Route: 048
     Dates: start: 20080201
  2. LASIX [Concomitant]
  3. METOPROLOL TARTRATE [Concomitant]
  4. AVAPRO [Concomitant]
  5. SYNTHROID [Concomitant]
  6. LYRICA [Concomitant]
  7. ASPIRIN [Concomitant]
  8. NABUMETONE [Concomitant]
  9. PAXIL [Concomitant]
  10. VICODIN [Concomitant]
  11. DETROL [Concomitant]
  12. LUTEIN [Concomitant]
  13. NASAREL [Concomitant]
  14. MUCINEX [Concomitant]
  15. NEXIUM [Concomitant]
  16. KLOR-CON [Concomitant]
  17. CALCIUM [Concomitant]
  18. ASCORBIC ACID [Concomitant]

REACTIONS (2)
  - FLUID OVERLOAD [None]
  - PNEUMONIA [None]
